FAERS Safety Report 17360196 (Version 1)
Quarter: 2020Q1

REPORT INFORMATION
  Report Type: Spontaneous
  Country: US (occurrence: US)
  Receive Date: 20200203
  Receipt Date: 20200203
  Transmission Date: 20200409
  Serious: Yes (Hospitalization, Other)
  Sender: FDA-Public Use
  Company Number: US-ACCORD-170771

PATIENT
  Age: 50 Year
  Sex: Male
  Weight: 117.93 kg

DRUGS (17)
  1. DAPTOMYCIN. [Suspect]
     Active Substance: DAPTOMYCIN
     Indication: CELLULITIS
     Dosage: STRENGTH: 500 MG
     Route: 042
     Dates: start: 20200113, end: 20200117
  2. ATORVASTATIN [Concomitant]
     Active Substance: ATORVASTATIN
     Dosage: STRENGTH 80 MG , QHS
     Route: 048
  3. CEFEPIME [Concomitant]
     Active Substance: CEFEPIME HYDROCHLORIDE
     Dosage: STRENGTH 2 G, Q24H
     Route: 042
  4. CLOPIDOGREL [Concomitant]
     Active Substance: CLOPIDOGREL BISULFATE
     Dosage: STRENGTH 75 MG, DAILY
     Route: 048
  5. EZETIMIBE. [Concomitant]
     Active Substance: EZETIMIBE
     Dosage: STRENGTH 10 MG,QHS
     Route: 048
  6. PORCINE [Concomitant]
     Dosage: STRENGTH 5000 UNITS, Q8H SCH
     Route: 058
  7. METOPROLOL. [Concomitant]
     Active Substance: METOPROLOL
     Dosage: STRENGTH 25 MG, Q12H SCH
     Route: 048
  8. ALLOPURINOL. [Concomitant]
     Active Substance: ALLOPURINOL
     Dosage: STRENGTH 100 MG, DAILY
     Route: 048
  9. ACETYLSALICYLIC ACID [Concomitant]
     Active Substance: ASPIRIN
     Dosage: STRENGTH 81 MG, DAILY
     Route: 048
  10. INSULIN GLARGINE [Concomitant]
     Active Substance: INSULIN GLARGINE
     Dosage: 50 UNITS Q12H SCH
     Route: 058
  11. NYSTATIN/NYSTATIN/LIPOSOME [Concomitant]
     Active Substance: NYSTATIN
     Dosage: BID
     Route: 061
  12. PANTOPRAZOLE [Concomitant]
     Active Substance: PANTOPRAZOLE
     Dosage: 40 MG, QAM AC
     Route: 048
  13. TORASEMIDE [Concomitant]
     Active Substance: TORSEMIDE
     Dosage: STRENGTH 40 MG,DAILY
     Route: 048
  14. INSULIN LISPRO/INSULIN LISPRO PROTAMINE SUSPE [Concomitant]
     Active Substance: INSULIN LISPRO
     Dosage: 1-6 UNITS QHS, 2-10 UNITS TID AC, 42 UNITS TID AC
     Route: 058
  15. SPIRONOLACTONE. [Concomitant]
     Active Substance: SPIRONOLACTONE
     Dosage: STRENGTH 50 MG, DAILY
     Route: 048
  16. VANCOMYCIN [Concomitant]
     Active Substance: VANCOMYCIN
     Dosage: 1000 MG Q25H
     Route: 042
  17. GABAPENTIN. [Concomitant]
     Active Substance: GABAPENTIN
     Dosage: STRENGTH 600 MG, DAILY
     Route: 048

REACTIONS (6)
  - Chills [Recovered/Resolved]
  - Feeling cold [Unknown]
  - Blood pressure decreased [Recovered/Resolved]
  - Asthenia [Recovered/Resolved]
  - Speech disorder [Recovered/Resolved]
  - Tremor [Unknown]

NARRATIVE: CASE EVENT DATE: 20200117
